FAERS Safety Report 13901305 (Version 1)
Quarter: 2017Q3

REPORT INFORMATION
  Report Type: Spontaneous
  Country: MX (occurrence: MX)
  Receive Date: 20170824
  Receipt Date: 20170824
  Transmission Date: 20171127
  Serious: Yes (Other)
  Sender: FDA-Public Use
  Company Number: MX-SA-2017SA150228

PATIENT
  Sex: Female
  Weight: 49 kg

DRUGS (6)
  1. PLAQUENIL [Concomitant]
     Active Substance: HYDROXYCHLOROQUINE SULFATE
     Indication: RHEUMATOID ARTHRITIS
     Route: 048
     Dates: start: 2014
  2. SILDENAFIL. [Concomitant]
     Active Substance: SILDENAFIL
     Indication: ARTERIAL DISORDER
     Route: 048
     Dates: start: 2011
  3. ARAVA [Suspect]
     Active Substance: LEFLUNOMIDE
     Indication: RHEUMATOID ARTHRITIS
     Route: 048
     Dates: start: 2005
  4. SALMETEROL [Concomitant]
     Active Substance: SALMETEROL
     Indication: PULMONARY FIBROSIS
     Dosage: 1 SHOT DOSE:1 UNIT(S)
     Route: 065
     Dates: start: 2011
  5. ENALAPRIL [Concomitant]
     Active Substance: ENALAPRIL
     Indication: ARTERIAL DISORDER
     Route: 048
     Dates: start: 2011
  6. SERETIDE [Concomitant]
     Active Substance: FLUTICASONE PROPIONATE\SALMETEROL XINAFOATE
     Indication: PULMONARY FIBROSIS
     Dosage: 1 SHOT DOSE:1 UNIT(S)
     Route: 065
     Dates: start: 2011

REACTIONS (4)
  - Arterial disorder [Not Recovered/Not Resolved]
  - Visual impairment [Not Recovered/Not Resolved]
  - Rheumatoid arthritis [Recovered/Resolved]
  - Pulmonary fibrosis [Not Recovered/Not Resolved]

NARRATIVE: CASE EVENT DATE: 2011
